FAERS Safety Report 5372295-1 (Version None)
Quarter: 2007Q2

REPORT INFORMATION
  Report Type: 
  Country: None (occurrence: None)
  Receive Date: 20070620
  Receipt Date: 20070315
  Transmission Date: 20071010
  Serious: No
  Sender: FDA-Public Use
  Company Number: 2007RL000113

PATIENT
  Age: 63 Year
  Sex: Female
  Weight: 65.7716 kg

DRUGS (16)
  1. OMACOR [Suspect]
     Indication: BLOOD TRIGLYCERIDES INCREASED
     Dosage: 4 GM;QD;PO
     Route: 048
     Dates: start: 20061201, end: 20070301
  2. MULTI-VITAMIN [Concomitant]
  3. MINERAL SUPPLEMENT [Concomitant]
  4. LEVOTHYROXINE SODIUM [Concomitant]
  5. BETA BLOCKING AGENTS [Concomitant]
  6. THIAZIDES [Concomitant]
  7. CYMBALTA [Concomitant]
  8. LANOXIN [Concomitant]
  9. POTASSIUM CHLORIDE [Concomitant]
  10. DIOVAN [Concomitant]
  11. ZYRTEC [Concomitant]
  12. ESTROGENS [Concomitant]
  13. RHINOCORT [Concomitant]
  14. PATANOL [Concomitant]
  15. ATROVENT [Concomitant]
  16. PRILOSEC [Concomitant]

REACTIONS (6)
  - ABDOMINAL DISTENSION [None]
  - CONSTIPATION [None]
  - DIARRHOEA [None]
  - ERUCTATION [None]
  - OEDEMA MOUTH [None]
  - RASH PRURITIC [None]
